FAERS Safety Report 7267512 (Version 5)
Quarter: 2014Q2

REPORT INFORMATION
  Report Type: Spontaneous
  Country: BR (occurrence: BR)
  Receive Date: 20100201
  Receipt Date: 20140513
  Transmission Date: 20141212
  Serious: Yes (Other)
  Sender: FDA-Public Use
  Company Number: BR-PFIZER INC-2010011435

PATIENT
  Age: 34 Year
  Sex: Female

DRUGS (1)
  1. CHAMPIX [Suspect]
     Indication: SMOKING CESSATION THERAPY
     Dosage: 2 TABLETS/DAY
     Route: 048
     Dates: start: 200906, end: 200907

REACTIONS (21)
  - Polyneuropathy [Not Recovered/Not Resolved]
  - Neuropathy peripheral [Unknown]
  - Pituitary tumour benign [Unknown]
  - Orthostatic hypotension [Unknown]
  - Feeling of despair [Unknown]
  - Paraesthesia [Not Recovered/Not Resolved]
  - Skin sensitisation [Not Recovered/Not Resolved]
  - Tremor [Not Recovered/Not Resolved]
  - Formication [Unknown]
  - General physical health deterioration [Unknown]
  - Breast disorder [Unknown]
  - Pain [Unknown]
  - Blood prolactin abnormal [Unknown]
  - Thyroid function test abnormal [Unknown]
  - Hyperprolactinaemia [Unknown]
  - Allodynia [Unknown]
  - Sensory disturbance [Unknown]
  - Osteoarthritis [Unknown]
  - Oesophagitis [Unknown]
  - Reflux gastritis [Unknown]
  - Chronic gastritis [Unknown]
